FAERS Safety Report 7465191-7 (Version None)
Quarter: 2011Q2

REPORT INFORMATION
  Report Type: 
  Country: None (occurrence: None)
  Receive Date: 20110509
  Receipt Date: 20110316
  Transmission Date: 20111010
  Serious: Yes (Life-Threatening, Hospitalization, Other)
  Sender: FDA-Public Use
  Company Number: DE-PFIZER INC-2011046793

PATIENT
  Age: 75 Year
  Sex: Female

DRUGS (2)
  1. AMIODARONE HYDROCHLORIDE [Suspect]
     Dosage: 200 MG, 1X/DAY
     Route: 048
     Dates: start: 20101106, end: 20101107
  2. AMIODARONE HYDROCHLORIDE [Suspect]
     Indication: ATRIAL FIBRILLATION
     Dosage: 100 MG, 1X/DAY
     Route: 048
     Dates: start: 20090216, end: 20101102

REACTIONS (4)
  - TORSADE DE POINTES [None]
  - EPISTAXIS [None]
  - LONG QT SYNDROME [None]
  - SHOCK HAEMORRHAGIC [None]
